FAERS Safety Report 12010195 (Version 1)
Quarter: 2016Q1

REPORT INFORMATION
  Report Type: Spontaneous
  Country: US (occurrence: None)
  Receive Date: 20160204
  Receipt Date: 20160204
  Transmission Date: 20160526
  Serious: Yes (Hospitalization)
  Sender: FDA-Public Use
  Company Number: None

PATIENT
  Age: 82 Year
  Sex: Female
  Weight: 63.05 kg

DRUGS (20)
  1. LEVEMIR [Concomitant]
     Active Substance: INSULIN DETEMIR
  2. LASIX [Concomitant]
     Active Substance: FUROSEMIDE
  3. ELIQUIS [Concomitant]
     Active Substance: APIXABAN
  4. CLARITIN [Concomitant]
     Active Substance: LORATADINE
  5. MULTI-VITAMIN W/OMEGA 3 [Concomitant]
  6. LEVOTHYROXINE. [Concomitant]
     Active Substance: LEVOTHYROXINE
  7. METOPROLOL. [Concomitant]
     Active Substance: METOPROLOL
  8. PROTONIX [Concomitant]
     Active Substance: PANTOPRAZOLE SODIUM
  9. BENZONATATE PEARLS [Concomitant]
  10. AMIODARONE [Suspect]
     Active Substance: AMIODARONE
     Indication: ATRIAL FIBRILLATION
  11. PREDNISONE. [Concomitant]
     Active Substance: PREDNISONE
  12. NOVOLOG [Concomitant]
     Active Substance: INSULIN ASPART
  13. SYMBICORT [Concomitant]
     Active Substance: BUDESONIDE\FORMOTEROL FUMARATE DIHYDRATE
  14. MUCINEX [Concomitant]
     Active Substance: GUAIFENESIN
  15. CALCIUM W/D3 [Concomitant]
  16. POTASSIUM CHLORIDE. [Concomitant]
     Active Substance: POTASSIUM CHLORIDE
  17. TRAMADOL. [Concomitant]
     Active Substance: TRAMADOL
  18. IPRATROPIUM BROMIDE/ALBUTEROL SULFATE [Concomitant]
     Active Substance: ALBUTEROL SULFATE\IPRATROPIUM BROMIDE
  19. PROLIA [Concomitant]
     Active Substance: DENOSUMAB
  20. ROBITUSSIN (GUAIFENESIN) [Concomitant]
     Active Substance: GUAIFENESIN

REACTIONS (4)
  - Pneumonia [None]
  - Cough [None]
  - Asthenia [None]
  - Interstitial lung disease [None]

NARRATIVE: CASE EVENT DATE: 20151201
